FAERS Safety Report 5951952-X (Version None)
Quarter: 2008Q4

REPORT INFORMATION
  Report Type: 
  Country: None (occurrence: None)
  Receive Date: 20081113
  Receipt Date: 20070926
  Transmission Date: 20090506
  Serious: No
  Sender: FDA-Public Use
  Company Number: A0684386A

PATIENT
  Age: 70 Year
  Sex: Male

DRUGS (7)
  1. COREG [Suspect]
     Indication: DRUG USE FOR UNKNOWN INDICATION
     Dosage: 25MG TWICE PER DAY
     Route: 048
     Dates: start: 20070701
  2. NORVASC [Concomitant]
  3. ZESTRIL [Concomitant]
  4. NOVOLOG [Concomitant]
  5. IRON [Concomitant]
  6. EPOGEN [Concomitant]
  7. HEPARIN [Concomitant]

REACTIONS (13)
  - ABDOMINAL PAIN UPPER [None]
  - ALOPECIA [None]
  - BLOOD GLUCOSE DECREASED [None]
  - CYANOSIS [None]
  - DEPRESSION [None]
  - DIZZINESS [None]
  - DYSPNOEA [None]
  - FATIGUE [None]
  - INSOMNIA [None]
  - IRRITABILITY [None]
  - RHINORRHOEA [None]
  - SOMNOLENCE [None]
  - VISUAL IMPAIRMENT [None]
